FAERS Safety Report 23868177 (Version 1)
Quarter: 2024Q2

REPORT INFORMATION
  Report Type: Spontaneous
  Country: US (occurrence: None)
  Receive Date: 20240516
  Receipt Date: 20240516
  Transmission Date: 20240716
  Serious: Yes (unspecified)
  Sender: FDA-Public Use
  Company Number: None

PATIENT
  Age: 74 Year
  Sex: Female
  Weight: 47.25 kg

DRUGS (18)
  1. GADOTERATE MEGLUMINE [Suspect]
     Active Substance: GADOTERATE MEGLUMINE
     Indication: Magnetic resonance imaging
  2. GADOTERATE MEGLUMINE [Suspect]
     Active Substance: GADOTERATE MEGLUMINE
     Indication: Scan with contrast
  3. AZITHROMYCIN [Concomitant]
     Active Substance: AZITHROMYCIN
  4. RIFAMPIN [Concomitant]
     Active Substance: RIFAMPIN
  5. Ethambutol Estrogen Patch [Concomitant]
  6. Prometrium Dorzolamide Eye [Concomitant]
  7. Latanoprost Eye [Concomitant]
  8. METROGEN [Concomitant]
  9. FORTEO [Concomitant]
     Active Substance: TERIPARATIDE
  10. LASIX [Concomitant]
     Active Substance: FUROSEMIDE
  11. CALCIUM [Concomitant]
     Active Substance: CALCIUM
  12. B Vitamin [Concomitant]
  13. VITAMIN K [Concomitant]
     Active Substance: PHYTONADIONE
  14. LUTEIN [Concomitant]
     Active Substance: LUTEIN
  15. DIETARY SUPPLEMENT\HERBALS\MILK THISTLE [Concomitant]
     Active Substance: MILK THISTLE
  16. Lactoferin [Concomitant]
  17. NIACINAMIDE [Concomitant]
     Active Substance: NIACINAMIDE
  18. MELATONIN [Concomitant]
     Active Substance: MELATONIN

REACTIONS (5)
  - Wrong technique in product usage process [None]
  - Infusion site pain [None]
  - Infusion site oedema [None]
  - Incorrect dose administered [None]
  - Device infusion issue [None]

NARRATIVE: CASE EVENT DATE: 20240515
